FAERS Safety Report 22042298 (Version 1)
Quarter: 2023Q1

REPORT INFORMATION
  Report Type: Report from Study
  Country: US (occurrence: US)
  Receive Date: 20230227
  Receipt Date: 20230227
  Transmission Date: 20230418
  Serious: Yes (Hospitalization, Other)
  Sender: FDA-Public Use
  Company Number: US-ABBVIE-4319440

PATIENT
  Sex: Female

DRUGS (2)
  1. RINVOQ [Suspect]
     Active Substance: UPADACITINIB
     Indication: Rheumatoid arthritis
     Dosage: FREQUENCY TEXT: ONCE DAILY
     Route: 048
  2. RINVOQ [Suspect]
     Active Substance: UPADACITINIB
     Indication: Rheumatoid arthritis
     Dosage: FREQUENCY TEXT: ONCE DAILY
     Route: 048
     Dates: start: 202101

REACTIONS (6)
  - Peroneal nerve palsy [Unknown]
  - Mouth ulceration [Recovered/Resolved]
  - Colitis ischaemic [Recovered/Resolved]
  - Weight decreased [Unknown]
  - Oral herpes [Recovered/Resolved]
  - Postoperative thrombosis [Unknown]

NARRATIVE: CASE EVENT DATE: 20220101
